FAERS Safety Report 8162499-7 (Version None)
Quarter: 2012Q1

REPORT INFORMATION
  Report Type: 
  Country: None (occurrence: None)
  Receive Date: 20120224
  Receipt Date: 20120224
  Transmission Date: 20120608
  Serious: Yes (Other)
  Sender: FDA-Public Use
  Company Number: None

PATIENT
  Age: 54 Year
  Sex: Female
  Weight: 64.863 kg

DRUGS (2)
  1. SUCRALFATE [Suspect]
     Indication: GASTRITIS
     Dosage: 1 TABLET
     Route: 048
     Dates: start: 20111216, end: 20120127
  2. SUCRALFATE [Suspect]
     Indication: GASTRIC DISORDER
     Dosage: 1 TABLET
     Route: 048
     Dates: start: 20111216, end: 20120127

REACTIONS (6)
  - PERIARTICULAR DISORDER [None]
  - FLUID RETENTION [None]
  - ABASIA [None]
  - PERIARTHRITIS [None]
  - JOINT EFFUSION [None]
  - ARTHRALGIA [None]
